FAERS Safety Report 9540593 (Version 1)
Quarter: 2013Q3

REPORT INFORMATION
  Report Type: Spontaneous
  Country: US (occurrence: US)
  Receive Date: 20130920
  Receipt Date: 20130920
  Transmission Date: 20140515
  Serious: No
  Sender: FDA-Public Use
  Company Number: US-PFIZER INC-2013268997

PATIENT
  Sex: Female

DRUGS (11)
  1. DIFLUCAN [Suspect]
     Dosage: UNK
  2. DEXTROMETHORPHAN HBR [Suspect]
     Dosage: UNK
  3. DOXYCYCLINE HYCLATE [Suspect]
     Dosage: UNK
  4. SEPTRA [Suspect]
     Dosage: UNK
  5. TRIMETHOPRIM [Suspect]
     Dosage: UNK
  6. CIPROFLOXACIN [Suspect]
     Dosage: UNK
  7. CEFUROXIME [Suspect]
     Dosage: UNK
  8. BIAXIN [Suspect]
     Dosage: UNK
  9. MUCINEX [Suspect]
     Dosage: UNK
  10. CLAVULANIC ACID [Suspect]
     Dosage: UNK
  11. CIPRO [Suspect]
     Dosage: UNK

REACTIONS (1)
  - Drug hypersensitivity [Unknown]
